FAERS Safety Report 20125784 (Version 1)
Quarter: 2021Q4

REPORT INFORMATION
  Report Type: Spontaneous
  Country: IT (occurrence: IT)
  Receive Date: 20211129
  Receipt Date: 20211129
  Transmission Date: 20220303
  Serious: Yes (Other)
  Sender: FDA-Public Use
  Company Number: IT-AMGEN-ITASP2021142935

PATIENT
  Age: 32 Year
  Sex: Male

DRUGS (4)
  1. CINACALCET HYDROCHLORIDE [Suspect]
     Active Substance: CINACALCET HYDROCHLORIDE
     Indication: Hyperparathyroidism tertiary
     Dosage: 120 MILLIGRAM, QD
     Route: 065
  2. CINACALCET HYDROCHLORIDE [Suspect]
     Active Substance: CINACALCET HYDROCHLORIDE
     Dosage: 30 MILLIGRAM, QD
     Route: 065
  3. ETELCALCETIDE [Suspect]
     Active Substance: ETELCALCETIDE
     Indication: Hyperparathyroidism tertiary
     Dosage: 5 MILLIGRAM, 3XW (5 MILLIGRAM, 3 TIMES/WK/ 15 MILLIGRAM, QW)
     Route: 065
  4. ETELCALCETIDE [Suspect]
     Active Substance: ETELCALCETIDE
     Dosage: 7.5 MILLIGRAM, 3XW (22.5 MILLIGRAM, QW/ 7.5 MILLIGRAM, 3 TIMES/WK))
     Route: 065

REACTIONS (8)
  - Myelofibrosis [Recovering/Resolving]
  - Off label use [Unknown]
  - Asthenia [Unknown]
  - Pyrexia [Unknown]
  - Parathyroid gland enlargement [Unknown]
  - Drug effective for unapproved indication [Unknown]
  - Treatment noncompliance [Unknown]
  - Hypocalcaemia [Unknown]
